FAERS Safety Report 4529338-4 (Version None)
Quarter: 2004Q4

REPORT INFORMATION
  Report Type: 
  Country: None (occurrence: None)
  Receive Date: 20041214
  Receipt Date: 20041203
  Transmission Date: 20050328
  Serious: Yes (Hospitalization, Other)
  Sender: FDA-Public Use
  Company Number: STA-AE-04-MTX-612

PATIENT
  Age: 81 Year
  Sex: Female

DRUGS (1)
  1. METHOTREXATE [Suspect]
     Dosage: 2.5 MG 2X PER 1 WK, ORAL
     Route: 048
     Dates: end: 20041030

REACTIONS (6)
  - ASTHENIA [None]
  - BONE MARROW DEPRESSION [None]
  - GENERAL PHYSICAL HEALTH DETERIORATION [None]
  - MELAENA [None]
  - PANCYTOPENIA [None]
  - SEPSIS [None]
